FAERS Safety Report 23563884 (Version 8)
Quarter: 2024Q3

REPORT INFORMATION
  Report Type: Report from Study
  Country: DE (occurrence: DE)
  Receive Date: 20240226
  Receipt Date: 20240906
  Transmission Date: 20241017
  Serious: Yes (Hospitalization)
  Sender: ROCHE
  Company Number: DE-ROCHE-3458307

PATIENT
  Age: 36 Year
  Sex: Female
  Weight: 70.0 kg

DRUGS (29)
  1. OCREVUS [Suspect]
     Active Substance: OCRELIZUMAB
     Indication: Relapsing multiple sclerosis
     Route: 042
     Dates: start: 20181203, end: 20181217
  2. OCREVUS [Suspect]
     Active Substance: OCRELIZUMAB
     Route: 042
     Dates: start: 20190618, end: 20220217
  3. OCREVUS [Suspect]
     Active Substance: OCRELIZUMAB
     Route: 042
     Dates: start: 20230223, end: 20230817
  4. DIMETHINDENE MALEATE [Concomitant]
     Active Substance: DIMETHINDENE MALEATE
     Route: 042
     Dates: start: 20181203, end: 20181217
  5. DIMETHINDENE MALEATE [Concomitant]
     Active Substance: DIMETHINDENE MALEATE
     Route: 042
     Dates: start: 20190618, end: 20230817
  6. CEFUROXIME [Concomitant]
     Active Substance: CEFUROXIME
     Indication: Pyrexia
     Route: 042
     Dates: start: 20231111, end: 20231115
  7. CEFUROXIME [Concomitant]
     Active Substance: CEFUROXIME
     Route: 048
     Dates: start: 20231116, end: 20231121
  8. COMIRNATY [Concomitant]
     Indication: COVID-19 prophylaxis
     Route: 030
     Dates: start: 20220711, end: 20220711
  9. COMIRNATY [Concomitant]
     Indication: COVID-19 prophylaxis
     Route: 030
     Dates: start: 20210520, end: 20210520
  10. COMIRNATY [Concomitant]
     Route: 030
     Dates: start: 20210701, end: 20210701
  11. FOSFOMYCIN [Concomitant]
     Active Substance: FOSFOMYCIN
     Indication: Urinary tract infection
     Route: 048
     Dates: start: 20230220, end: 20230220
  12. CEFPODOXIME [Concomitant]
     Active Substance: CEFPODOXIME
     Indication: Sinusitis
     Route: 048
     Dates: start: 20221215, end: 20221224
  13. CEFPODOXIME [Concomitant]
     Active Substance: CEFPODOXIME
     Route: 048
     Dates: start: 20220805, end: 20220812
  14. DOXYCYCLINE [Concomitant]
     Active Substance: DOXYCYCLINE\DOXYCYCLINE HYCLATE
     Indication: Pyrexia
     Route: 048
     Dates: start: 20240117, end: 20240207
  15. PRIVIGEN [Concomitant]
     Active Substance: HUMAN IMMUNOGLOBULIN G
     Indication: Hepatic fibrosis
     Route: 042
     Dates: start: 20240112, end: 20240112
  16. DIMETHINDENE [Concomitant]
     Active Substance: DIMETHINDENE
     Route: 042
     Dates: start: 20240112, end: 20240112
  17. IVY EXTRACT [Concomitant]
     Active Substance: IVY EXTRACT
     Indication: Cough
     Dosage: DEFINITION OF THE INTERVAL: AS REQUIRED
     Route: 048
     Dates: start: 20220724, end: 20220804
  18. IVY EXTRACT [Concomitant]
     Active Substance: IVY EXTRACT
     Indication: COVID-19
  19. ALBUTEROL [Concomitant]
     Active Substance: ALBUTEROL
     Indication: Influenza
     Dosage: DEFINITION OF THE INTERVAL: AS REQUIRED
     Route: 055
     Dates: start: 202212, end: 20230101
  20. METHYPRED [Concomitant]
     Route: 042
     Dates: start: 20181203, end: 20181217
  21. METHYPRED [Concomitant]
     Route: 042
     Dates: start: 20190618
  22. FERROUS GLYCINE SULFATE [Concomitant]
     Active Substance: FERROUS GLYCINE SULFATE
     Indication: Microcytic anaemia
     Route: 048
     Dates: start: 20231111
  23. XYLOMETAZOLINE HYDROCHLORIDE [Concomitant]
     Active Substance: XYLOMETAZOLINE HYDROCHLORIDE
     Indication: Sinusitis
     Dosage: DEFINITION OF THE INTERVAL: AS REQUIRED
     Route: 045
     Dates: start: 20231111
  24. SERTRALINE HYDROCHLORIDE [Concomitant]
     Active Substance: SERTRALINE HYDROCHLORIDE
     Route: 048
     Dates: start: 20230320
  25. ACETAMINOPHEN [Concomitant]
     Active Substance: ACETAMINOPHEN
     Route: 048
     Dates: start: 20240112, end: 20240113
  26. SPIKEVAX [Concomitant]
     Active Substance: CX-046684
     Indication: COVID-19 prophylaxis
     Route: 030
     Dates: start: 20220109, end: 20220109
  27. PREDNISOLONE [Concomitant]
     Active Substance: PREDNISOLONE
     Route: 042
     Dates: start: 20240112, end: 20240112
  28. CHOLECALCIFEROL [Concomitant]
     Active Substance: CHOLECALCIFEROL
     Indication: Vitamin D deficiency
     Route: 048
     Dates: start: 2015
  29. ESCITALOPRAM [Concomitant]
     Active Substance: ESCITALOPRAM OXALATE
     Indication: Depression
     Route: 048
     Dates: start: 20150629

REACTIONS (2)
  - Hepatic fibrosis [Unknown]
  - Liver function test increased [Recovered/Resolved]

NARRATIVE: CASE EVENT DATE: 20231101
